FAERS Safety Report 5167063-X (Version None)
Quarter: 2006Q4

REPORT INFORMATION
  Report Type: 
  Country: None (occurrence: None)
  Receive Date: 20061130
  Receipt Date: 20031023
  Transmission Date: 20070319
  Serious: No
  Sender: FDA-Public Use
  Company Number: 23100341

PATIENT
  Age: 54 Year
  Sex: Male
  Weight: 94.5 kg

DRUGS (8)
  1. ARGATROBAN [Suspect]
     Indication: CONTINUOUS HAEMODIAFILTRATION
     Dosage: 0.3 MCG/KG/MIN CONT IV
     Route: 042
     Dates: start: 20031020, end: 20031023
  2. ARGATROBAN [Suspect]
     Indication: HEPARIN-INDUCED THROMBOCYTOPENIA
     Dosage: 0.3 MCG/KG/MIN CONT IV
     Route: 042
     Dates: start: 20031020, end: 20031023
  3. ACTIVASE [Concomitant]
  4. LACTULOSE [Concomitant]
  5. LEVOFLOXACN [Concomitant]
  6. RABREPRAZOLE [Concomitant]
  7. SALMETEROL [Concomitant]
  8. ALBUTEROL [Concomitant]

REACTIONS (5)
  - ACTIVATED PARTIAL THROMBOPLASTIN TIME PROLONGED [None]
  - EPISTAXIS [None]
  - INJECTION SITE HAEMORRHAGE [None]
  - INTERNATIONAL NORMALISED RATIO INCREASED [None]
  - PLATELET COUNT DECREASED [None]
